FAERS Safety Report 10145858 (Version 1)
Quarter: 2014Q2

REPORT INFORMATION
  Report Type: Report from Study
  Country: US (occurrence: US)
  Receive Date: 20140501
  Receipt Date: 20140501
  Transmission Date: 20141212
  Serious: No
  Sender: FDA-Public Use
  Company Number: US-ABBVIE-13P-163-1133442-00

PATIENT
  Age: 28 Year
  Sex: Female

DRUGS (11)
  1. CREON [Suspect]
     Indication: CYSTIC FIBROSIS
     Dosage: 5 DOSAGE FORMS PER MEAL
     Dates: start: 1999
  2. ERSADILE [Concomitant]
     Indication: PRODUCT USED FOR UNKNOWN INDICATION
  3. VITAMIN A [Concomitant]
     Indication: PRODUCT USED FOR UNKNOWN INDICATION
  4. VITAMIN B [Concomitant]
     Indication: PRODUCT USED FOR UNKNOWN INDICATION
  5. VITAMIN D NOS [Concomitant]
     Indication: PRODUCT USED FOR UNKNOWN INDICATION
  6. VITAMIN E [Concomitant]
     Indication: PRODUCT USED FOR UNKNOWN INDICATION
  7. VITAMIN K [Concomitant]
     Indication: PRODUCT USED FOR UNKNOWN INDICATION
  8. ALBUTEROL [Concomitant]
     Indication: PRODUCT USED FOR UNKNOWN INDICATION
  9. PROMAZINE [Concomitant]
     Indication: PRODUCT USED FOR UNKNOWN INDICATION
  10. HYPERTONIC SALINE SOLUTION [Concomitant]
     Indication: PRODUCT USED FOR UNKNOWN INDICATION
  11. UNSPECIFIED MEDICATIONS [Concomitant]
     Indication: PRODUCT USED FOR UNKNOWN INDICATION

REACTIONS (4)
  - Constipation [Not Recovered/Not Resolved]
  - Weight increased [Not Recovered/Not Resolved]
  - Weight decreased [Not Recovered/Not Resolved]
  - Abdominal pain upper [Not Recovered/Not Resolved]
